FAERS Safety Report 4618884-0 (Version None)
Quarter: 2005Q1

REPORT INFORMATION
  Report Type: 
  Country: None (occurrence: None)
  Receive Date: 20050323
  Receipt Date: 20050310
  Transmission Date: 20050727
  Serious: Yes (Other)
  Sender: FDA-Public Use
  Company Number: 2005029298

PATIENT
  Sex: Female

DRUGS (6)
  1. NORPACE [Suspect]
     Indication: VENTRICULAR ARRHYTHMIA
     Dosage: 450 MG (150 MG, 3 IN 1 D), ORAL
     Route: 048
     Dates: start: 19790101
  2. DAYPRO [Suspect]
     Indication: ARTHRITIS
     Dosage: ORAL
     Route: 048
  3. PROCAINAMIDE [Suspect]
     Indication: VENTRICULAR ARRHYTHMIA
     Dosage: ORAL
     Route: 048
     Dates: start: 19780101
  4. HMG COA REDUCTASE INHIBITORS (HMG COA REDUCTASE INHIBITORS) [Suspect]
     Indication: BLOOD CHOLESTEROL INCREASED
     Dosage: ORAL
     Route: 048
  5. TRIAMTERENE AND HYDROCHLOROTHIAZIDE [Concomitant]
  6. ACETAMINOPHEN [Concomitant]

REACTIONS (6)
  - ARTHRITIS [None]
  - CEREBROVASCULAR ACCIDENT [None]
  - DYSPEPSIA [None]
  - GASTROINTESTINAL DISORDER [None]
  - GASTROINTESTINAL HAEMORRHAGE [None]
  - SYSTEMIC LUPUS ERYTHEMATOSUS [None]
